FAERS Safety Report 9393160 (Version 2)
Quarter: 2013Q3

REPORT INFORMATION
  Report Type: Spontaneous
  Country: DE (occurrence: DE)
  Receive Date: 20130710
  Receipt Date: 20130715
  Transmission Date: 20140515
  Serious: Yes (Other)
  Sender: FDA-Public Use
  Company Number: DE-ASTRAZENECA-2013SE50799

PATIENT
  Age: 27026 Day
  Sex: Female
  Weight: 63 kg

DRUGS (6)
  1. BRILIQUE [Suspect]
     Indication: ACUTE MYOCARDIAL INFARCTION
     Route: 048
     Dates: start: 20130410
  2. BRILIQUE [Suspect]
     Indication: CORONARY ARTERIAL STENT INSERTION
     Route: 048
     Dates: start: 20130410
  3. ASS [Concomitant]
     Route: 048
     Dates: start: 20130327
  4. RAMIPRIL [Concomitant]
     Indication: ACUTE MYOCARDIAL INFARCTION
     Route: 048
     Dates: start: 20130327
  5. BELOC MITE [Concomitant]
     Indication: ACUTE MYOCARDIAL INFARCTION
     Route: 048
     Dates: start: 20130327
  6. XARELTO [Concomitant]
     Indication: PULMONARY EMBOLISM
     Route: 048
     Dates: start: 20130621

REACTIONS (1)
  - Dyspnoea [Not Recovered/Not Resolved]
